FAERS Safety Report 19262207 (Version 2)
Quarter: 2021Q4

REPORT INFORMATION
  Report Type: Spontaneous
  Country: US (occurrence: US)
  Receive Date: 20210516
  Receipt Date: 20211026
  Transmission Date: 20220303
  Serious: No
  Sender: FDA-Public Use
  Company Number: US-SA-SAC20210510001396

PATIENT
  Age: 58 Year
  Sex: Female

DRUGS (1)
  1. DUPIXENT [Suspect]
     Active Substance: DUPILUMAB
     Indication: Nasal polyps
     Dosage: 300 MG, QOW
     Route: 058
     Dates: start: 2021

REACTIONS (4)
  - Vitreous floaters [Unknown]
  - Eye pruritus [Unknown]
  - Eye pain [Unknown]
  - Dry eye [Unknown]

NARRATIVE: CASE EVENT DATE: 20210305
